FAERS Safety Report 9064401 (Version 1)
Quarter: 2013Q1

REPORT INFORMATION
  Report Type: Spontaneous
  Country: US (occurrence: US)
  Receive Date: 20130131
  Receipt Date: 20130131
  Transmission Date: 20140127
  Serious: Yes (Other)
  Sender: FDA-Public Use
  Company Number: US-ABBOTT-12P-163-0989149-00

PATIENT
  Age: 62 Year
  Sex: Male

DRUGS (1)
  1. HUMIRA PEN [Suspect]
     Indication: PSORIASIS
     Dates: start: 2005, end: 20120907

REACTIONS (2)
  - Bladder transitional cell carcinoma [Not Recovered/Not Resolved]
  - Pulmonary mass [Unknown]
